FAERS Safety Report 15292873 (Version 1)
Quarter: 2018Q3

REPORT INFORMATION
  Report Type: Spontaneous
  Country: US (occurrence: US)
  Receive Date: 20180806
  Receipt Date: 20180806
  Transmission Date: 20181010
  Serious: No
  Sender: FDA-Public Use
  Company Number: None

PATIENT
  Age: 49 Year
  Sex: Female

DRUGS (1)
  1. STELARA [Suspect]
     Active Substance: USTEKINUMAB
     Dosage: OTHER
     Route: 058

REACTIONS (5)
  - Disturbance in attention [None]
  - Proctalgia [None]
  - Arthralgia [None]
  - Neck pain [None]
  - Inflammation [None]

NARRATIVE: CASE EVENT DATE: 20180806
